FAERS Safety Report 19098691 (Version 1)
Quarter: 2021Q2

REPORT INFORMATION
  Report Type: Spontaneous
  Country: JP (occurrence: JP)
  Receive Date: 20210406
  Receipt Date: 20210406
  Transmission Date: 20210717
  Serious: Yes (Other)
  Sender: FDA-Public Use
  Company Number: JP-ROCHE-2805035

PATIENT
  Age: 7 Decade

DRUGS (1)
  1. ACTEMRA [Suspect]
     Active Substance: TOCILIZUMAB
     Indication: RHEUMATOID ARTHRITIS
     Dosage: DOSAGE IS UNCERTAIN.
     Route: 058
     Dates: start: 20201001, end: 20210329

REACTIONS (2)
  - Infection [Not Recovered/Not Resolved]
  - Hyperkeratosis [Unknown]

NARRATIVE: CASE EVENT DATE: 20210329
